FAERS Safety Report 13484723 (Version 3)
Quarter: 2017Q4

REPORT INFORMATION
  Report Type: Spontaneous
  Country: US (occurrence: US)
  Receive Date: 20170426
  Receipt Date: 20171012
  Transmission Date: 20180320
  Serious: No
  Sender: FDA-Public Use
  Company Number: US-PFIZER INC-2017181506

PATIENT
  Age: 6 Year
  Sex: Male
  Weight: 28.58 kg

DRUGS (5)
  1. FLOVENT [Concomitant]
     Active Substance: FLUTICASONE PROPIONATE
     Dosage: UNK
     Dates: start: 201510
  2. QUILLICHEW ER [Suspect]
     Active Substance: METHYLPHENIDATE HYDROCHLORIDE
     Indication: ATTENTION DEFICIT/HYPERACTIVITY DISORDER
     Dosage: 20 MG, DAILY(ONE IN THE MORNING PER DAY)
     Route: 048
     Dates: start: 201611
  3. FLOVENT [Concomitant]
     Active Substance: FLUTICASONE PROPIONATE
     Indication: ASTHMA
     Dosage: HFA 101MCG, INHALES TWO PUFFS TWICE PER DAY
     Dates: start: 2016
  4. ALBUTEROL TREATMENTS [Concomitant]
     Dosage: UNK
     Dates: start: 201201
  5. ALBUTEROL TREATMENTS [Concomitant]
     Indication: ASTHMA
     Dosage: SUL 2.5MG/3ML SOLN(USES TWO PUFFS AS NEEDED)
     Dates: start: 2016

REACTIONS (5)
  - Arachnophobia [Not Recovered/Not Resolved]
  - Change in sustained attention [Unknown]
  - Urinary incontinence [Recovered/Resolved]
  - Fear [Not Recovered/Not Resolved]
  - Depressed mood [Recovered/Resolved]

NARRATIVE: CASE EVENT DATE: 201611
